FAERS Safety Report 9310677 (Version 12)
Quarter: 2016Q1

REPORT INFORMATION
  Report Type: Report from Study
  Country: AR (occurrence: AR)
  Receive Date: 20130527
  Receipt Date: 20160219
  Transmission Date: 20160526
  Serious: Yes (Hospitalization)
  Sender: FDA-Public Use
  Company Number: AR-ROCHE-1226834

PATIENT
  Age: 73 Year
  Sex: Female
  Weight: 59 kg

DRUGS (67)
  1. CETRIZINE [Concomitant]
     Active Substance: CETIRIZINE HYDROCHLORIDE
     Indication: RHINITIS
  2. SALINE [Concomitant]
     Indication: DEHYDRATION
     Route: 065
     Dates: start: 20130518, end: 20130521
  3. ONDANSETRON [Concomitant]
     Active Substance: ONDANSETRON
     Indication: PROPHYLAXIS
     Route: 065
     Dates: start: 20130506, end: 20130506
  4. IPRATROPIUM [Concomitant]
     Active Substance: IPRATROPIUM
     Route: 065
     Dates: start: 20130828, end: 20130831
  5. AMPHOTERICIN [Concomitant]
     Active Substance: AMPHOTERICIN B
     Indication: MENINGITIS CRYPTOCOCCAL
     Route: 065
     Dates: start: 20130803, end: 20130823
  6. HALOPERIDOL. [Concomitant]
     Active Substance: HALOPERIDOL
     Indication: PSYCHOMOTOR HYPERACTIVITY
     Route: 065
     Dates: start: 20130729, end: 20130801
  7. GAMMAGLOBULIN [Concomitant]
     Active Substance: HUMAN IMMUNOGLOBULIN G
     Indication: HYPOGAMMAGLOBULINAEMIA
     Route: 065
     Dates: start: 20130801, end: 20130801
  8. LABETALOL [Concomitant]
     Active Substance: LABETALOL\LABETALOL HYDROCHLORIDE
     Indication: HYPERTENSION
     Route: 065
     Dates: start: 20130829, end: 20130829
  9. ACICLOVIR [Concomitant]
     Active Substance: ACYCLOVIR
     Indication: PROPHYLAXIS
     Route: 065
     Dates: start: 20130521, end: 20130529
  10. IBUPROFEN. [Concomitant]
     Active Substance: IBUPROFEN
     Indication: PYREXIA
     Route: 065
     Dates: start: 20130506, end: 20130507
  11. PIPERACILLIN/TAZOBACTAM [Concomitant]
     Active Substance: PIPERACILLIN SODIUM\TAZOBACTAM SODIUM
     Indication: RESPIRATORY TRACT INFECTION
     Route: 065
     Dates: start: 20130828, end: 20130830
  12. QUETIAPINE [Concomitant]
     Active Substance: QUETIAPINE
     Indication: PSYCHOMOTOR HYPERACTIVITY
     Route: 065
     Dates: start: 20130802, end: 20130817
  13. AMPICILLIN/SULBACTAM [Concomitant]
     Active Substance: AMPICILLIN SODIUM\SULBACTAM SODIUM
     Indication: LUNG INFECTION
     Route: 065
     Dates: start: 20130730, end: 20130731
  14. AMPICILLIN [Concomitant]
     Active Substance: AMPICILLIN
     Indication: LUNG INFECTION
     Route: 065
     Dates: start: 20130801, end: 20130803
  15. LACTULOSE. [Concomitant]
     Active Substance: LACTULOSE
     Indication: CONSTIPATION
     Route: 065
     Dates: start: 20130811, end: 20130820
  16. FRESUBIN [Concomitant]
     Active Substance: AMINO ACIDS\DEXTROSE\ELECTROLYTES NOS\SOYBEAN OIL\VITAMINS
     Route: 065
     Dates: start: 20130813, end: 20130822
  17. LORATADINE. [Concomitant]
     Active Substance: LORATADINE
     Indication: RHINITIS
  18. IPRATROPIUM [Concomitant]
     Active Substance: IPRATROPIUM
     Route: 065
     Dates: start: 20130728, end: 20130823
  19. POTASSIUM CHLORIDE. [Concomitant]
     Active Substance: POTASSIUM CHLORIDE
     Route: 065
     Dates: start: 20130831, end: 20130831
  20. AZITHROMYCIN ANHYDROUS. [Concomitant]
     Active Substance: AZITHROMYCIN ANHYDROUS
     Indication: LUNG INFECTION
     Route: 065
     Dates: start: 20130729, end: 20130802
  21. VITAMIN B12 [Concomitant]
     Active Substance: CYANOCOBALAMIN
     Route: 065
     Dates: start: 201303
  22. LOSARTAN. [Concomitant]
     Active Substance: LOSARTAN
     Indication: HYPERTENSION
     Route: 065
     Dates: start: 20130518, end: 20130806
  23. HEPARIN [Concomitant]
     Active Substance: HEPARIN SODIUM
     Indication: PROPHYLAXIS
     Route: 065
     Dates: start: 20130518, end: 20130518
  24. HYDROCORTISONE. [Concomitant]
     Active Substance: HYDROCORTISONE
     Indication: PROPHYLAXIS
     Route: 065
     Dates: start: 20130801, end: 20130823
  25. VANCOMYCIN [Concomitant]
     Active Substance: VANCOMYCIN
     Indication: RESPIRATORY TRACT INFECTION
     Route: 065
     Dates: start: 20130828, end: 20130828
  26. POTASSIUM CHLORIDE. [Concomitant]
     Active Substance: POTASSIUM CHLORIDE
     Route: 065
     Dates: start: 20130813, end: 20130816
  27. RANITIDINE [Concomitant]
     Active Substance: RANITIDINE\RANITIDINE HYDROCHLORIDE
     Indication: PROPHYLAXIS
     Route: 065
     Dates: start: 20130518, end: 20130518
  28. ALPRAZOLAM. [Concomitant]
     Active Substance: ALPRAZOLAM
     Indication: INSOMNIA
  29. SULFAMETHOXAZOLE/TRIMETHOPRIM [Concomitant]
     Active Substance: SULFAMETHOXAZOLE\TRIMETHOPRIM
     Indication: PROPHYLAXIS
     Route: 065
     Dates: start: 20130506
  30. DICLOFENAC [Concomitant]
     Active Substance: DICLOFENAC
     Indication: BACK PAIN
     Route: 065
     Dates: start: 20130510, end: 20130518
  31. IPRATROPIUM [Concomitant]
     Active Substance: IPRATROPIUM
     Indication: PROPHYLAXIS
     Route: 065
     Dates: start: 20130519, end: 20130525
  32. FUROSEMIDE. [Concomitant]
     Active Substance: FUROSEMIDE
     Indication: CARDIAC FAILURE
     Route: 065
     Dates: start: 20130828
  33. CLARITHROMYCIN. [Concomitant]
     Active Substance: CLARITHROMYCIN
     Indication: LUNG INFECTION
     Route: 065
     Dates: start: 20130726, end: 20130726
  34. AZITHROMYCIN ANHYDROUS. [Concomitant]
     Active Substance: AZITHROMYCIN ANHYDROUS
     Route: 065
     Dates: start: 20130902, end: 20130906
  35. ACETYLCYSTEIN [Concomitant]
     Active Substance: ACETYLCYSTEINE
     Route: 065
     Dates: start: 20130731, end: 20130823
  36. OMEPRAZOL [Concomitant]
     Active Substance: OMEPRAZOLE
     Indication: PROPHYLAXIS
     Route: 065
     Dates: start: 20130519, end: 20130806
  37. LORAZEPAM. [Concomitant]
     Active Substance: LORAZEPAM
     Indication: INSOMNIA
     Route: 065
     Dates: start: 20130520, end: 20130529
  38. DIPIRONE [Concomitant]
     Active Substance: METAMIZOLE SODIUM
     Route: 065
     Dates: start: 20130506, end: 20130506
  39. AMLODIPINE [Concomitant]
     Active Substance: AMLODIPINE BESYLATE
     Indication: HYPERTENSION
     Route: 065
     Dates: start: 20130523, end: 20130529
  40. CLONAZEPAM. [Concomitant]
     Active Substance: CLONAZEPAM
     Indication: INSOMNIA
     Route: 065
     Dates: start: 20130524, end: 20130529
  41. SALBUTAMOL [Concomitant]
     Active Substance: ALBUTEROL
     Route: 065
     Dates: start: 20130728, end: 20130823
  42. SALBUTAMOL [Concomitant]
     Active Substance: ALBUTEROL
     Route: 065
     Dates: start: 20130828, end: 20130831
  43. FLUCONAZOLE. [Concomitant]
     Active Substance: FLUCONAZOLE
     Indication: MENINGITIS CRYPTOCOCCAL
     Route: 065
     Dates: start: 20130731
  44. DEXTROSE. [Concomitant]
     Active Substance: DEXTROSE
     Route: 065
     Dates: start: 20130729, end: 20130823
  45. SPIRONOLACTONE. [Concomitant]
     Active Substance: SPIRONOLACTONE
     Indication: HYPERTENSION
     Route: 065
     Dates: start: 20130814
  46. CYANOCOBALAMIN. [Concomitant]
     Active Substance: CYANOCOBALAMIN
     Indication: ANAEMIA
     Route: 065
     Dates: start: 201303
  47. RITUXIMAB [Suspect]
     Active Substance: RITUXIMAB
     Indication: CHRONIC LYMPHOCYTIC LEUKAEMIA
     Dosage: LAST DOSE OF RITUXIMAB TAKEN:770MG, ON 6/MAY/2013 LAST DOSE OF RITUXIMAB WAS TAKEN
     Route: 042
     Dates: start: 20130408
  48. PIROXICAM. [Concomitant]
     Active Substance: PIROXICAM
     Indication: BACK PAIN
     Route: 065
     Dates: start: 20130510, end: 20130518
  49. ATENOLOL. [Concomitant]
     Active Substance: ATENOLOL
     Indication: HYPERTENSION
     Route: 065
     Dates: start: 20130523
  50. MORPHINE [Concomitant]
     Active Substance: MORPHINE
     Indication: PAIN
     Route: 065
     Dates: start: 20130520, end: 20130529
  51. DIPIRONE [Concomitant]
     Active Substance: METAMIZOLE SODIUM
     Indication: PYREXIA
     Route: 065
     Dates: start: 20130528, end: 20130528
  52. AMLODIPINE [Concomitant]
     Active Substance: AMLODIPINE BESYLATE
     Route: 065
     Dates: start: 20130727
  53. IBUPROFEN. [Concomitant]
     Active Substance: IBUPROFEN
     Indication: BACK PAIN
     Route: 065
     Dates: start: 20130510, end: 20130518
  54. SALBUTAMOL [Concomitant]
     Active Substance: ALBUTEROL
     Indication: PROPHYLAXIS
     Route: 065
     Dates: start: 20130518, end: 20130519
  55. ENALAPRIL [Concomitant]
     Active Substance: ENALAPRIL
     Indication: HYPERTENSION
     Route: 065
     Dates: start: 20130727, end: 20130727
  56. POTASSIUM CHLORIDE. [Concomitant]
     Active Substance: POTASSIUM CHLORIDE
     Route: 065
     Dates: start: 20130731, end: 20130801
  57. PANTOPRAZOL [Concomitant]
     Active Substance: PANTOPRAZOLE SODIUM
     Route: 065
     Dates: start: 20130808
  58. AMILORIDE HCL W/ HYDROCHLOROTHIAZIDE [Concomitant]
     Active Substance: AMILORIDE HYDROCHLORIDE\HYDROCHLOROTHIAZIDE
     Indication: HYPERTENSION
     Route: 065
     Dates: start: 20130816, end: 20130821
  59. SALINE [Concomitant]
     Route: 065
     Dates: start: 20130828, end: 20130831
  60. CLONAZEPAM. [Concomitant]
     Active Substance: CLONAZEPAM
     Route: 065
     Dates: start: 20130728, end: 20130729
  61. IBUPROFEN. [Concomitant]
     Active Substance: IBUPROFEN
     Indication: RHINITIS
     Route: 065
     Dates: start: 20130422, end: 20130427
  62. VANCOMYCIN [Concomitant]
     Active Substance: VANCOMYCIN
     Indication: PROPHYLAXIS
     Route: 065
     Dates: start: 20130519, end: 20130519
  63. HYDROCORTISONE. [Concomitant]
     Active Substance: HYDROCORTISONE
     Indication: CHILLS
     Route: 065
     Dates: start: 20130506, end: 20130506
  64. POTASSIUM CHLORIDE. [Concomitant]
     Active Substance: POTASSIUM CHLORIDE
     Indication: HYPOKALAEMIA
     Route: 065
     Dates: start: 20130728, end: 20130728
  65. RISPERIDONE. [Concomitant]
     Active Substance: RISPERIDONE
     Route: 065
     Dates: start: 20130728, end: 20130731
  66. ACETAMINOPHEN. [Concomitant]
     Active Substance: ACETAMINOPHEN
     Route: 065
     Dates: start: 20130801, end: 20130823
  67. ALLOPURINOL. [Concomitant]
     Active Substance: ALLOPURINOL
     Indication: HYPERURICAEMIA
     Route: 065
     Dates: start: 20130813, end: 20130823

REACTIONS (1)
  - Acute kidney injury [Recovered/Resolved]

NARRATIVE: CASE EVENT DATE: 20130518
